FAERS Safety Report 19128479 (Version 2)
Quarter: 2021Q2

REPORT INFORMATION
  Report Type: Spontaneous
  Country: US (occurrence: US)
  Receive Date: 20210413
  Receipt Date: 20210518
  Transmission Date: 20210717
  Serious: Yes (Hospitalization)
  Sender: FDA-Public Use
  Company Number: US-PARI RESPIRATORY EQUIPMENT, INC.-2021PAR00023

PATIENT
  Age: 5 Year
  Sex: Male
  Weight: 19.96 kg

DRUGS (2)
  1. KITABIS PAK [Suspect]
     Active Substance: TOBRAMYCIN
     Indication: UPPER RESPIRATORY TRACT INFECTION
     Dosage: 300 MG, 2X/DAY (EVERY 12 HOURS) FOR 28 DAYS ON AND 28 DAYS OFF
     Dates: start: 202011
  2. KITABIS PAK [Suspect]
     Active Substance: TOBRAMYCIN
     Indication: PNEUMONIA

REACTIONS (3)
  - Pneumonia [Recovered/Resolved]
  - Off label use [Not Recovered/Not Resolved]
  - Rhinovirus infection [Unknown]

NARRATIVE: CASE EVENT DATE: 202011
